FAERS Safety Report 8844642 (Version 2)
Quarter: 2012Q4

REPORT INFORMATION
  Report Type: 
  Country: US (occurrence: US)
  Receive Date: 20121017
  Receipt Date: 20121206
  Transmission Date: 20130627
  Serious: No
  Sender: FDA-Public Use
  Company Number: US-PFIZER INC-2012255122

PATIENT
  Age: 48 Year
  Sex: Female
  Weight: 81.63 kg

DRUGS (3)
  1. ADVIL MIGRAINE [Suspect]
     Indication: MIGRAINE
     Dosage: 400 mg (2 capsules of 200 mg) in a day, as needed
     Route: 048
     Dates: start: 201209
  2. ADVIL COLD + SINUS [Concomitant]
     Indication: SINUS HEADACHE
     Dosage: UNK, as needed
  3. BC [Concomitant]
     Indication: HEADACHE
     Dosage: UNK, as needed

REACTIONS (1)
  - Drug ineffective [Unknown]
